FAERS Safety Report 6287093-4 (Version None)
Quarter: 2009Q3

REPORT INFORMATION
  Report Type: 
  Country: None (occurrence: None)
  Receive Date: 20090728
  Receipt Date: 20090716
  Transmission Date: 20100115
  Serious: Yes (Hospitalization)
  Sender: FDA-Public Use
  Company Number: FR-PFIZER INC-2009245350

PATIENT
  Age: 37 Year

DRUGS (8)
  1. ALPRAZOLAM [Suspect]
     Dosage: UNK
     Dates: end: 20090204
  2. ALPRAZOLAM [Suspect]
     Dosage: UNK
     Route: 048
     Dates: start: 20090205, end: 20090205
  3. ATARAX [Suspect]
     Dosage: UNK
     Dates: end: 20090204
  4. ATARAX [Suspect]
     Dosage: UNK
     Route: 048
     Dates: start: 20090205, end: 20090205
  5. PAROXETINE [Suspect]
     Dosage: UNK
     Dates: end: 20090204
  6. PAROXETINE [Suspect]
     Dosage: UNK
     Route: 048
     Dates: start: 20090205, end: 20090205
  7. LORMETAZEPAM [Suspect]
     Dosage: UNK
     Dates: end: 20090204
  8. LORMETAZEPAM [Suspect]
     Dosage: UNK
     Route: 048
     Dates: start: 20090205, end: 20090205

REACTIONS (3)
  - COMA [None]
  - MULTIPLE DRUG OVERDOSE INTENTIONAL [None]
  - PNEUMONIA ASPIRATION [None]
